FAERS Safety Report 5959738-7 (Version None)
Quarter: 2008Q4

REPORT INFORMATION
  Report Type: 
  Country: None (occurrence: None)
  Receive Date: 20081120
  Receipt Date: 20081110
  Transmission Date: 20090506
  Serious: Yes (Hospitalization)
  Sender: FDA-Public Use
  Company Number: ZA-BRISTOL-MYERS SQUIBB COMPANY-14382493

PATIENT
  Age: 38 Year
  Sex: Male

DRUGS (6)
  1. ABATACEPT [Suspect]
     Indication: COLITIS ULCERATIVE
     Route: 042
     Dates: start: 20080513
  2. AZATHIOPRINE [Suspect]
     Indication: INFLAMMATORY BOWEL DISEASE
     Dates: start: 20080717
  3. ASACOL [Concomitant]
     Indication: INFLAMMATORY BOWEL DISEASE
     Dates: start: 20080812
  4. TRAMADOL HYDROCHLORIDE AND ACETAMINOPHEN [Concomitant]
     Dates: start: 20080222
  5. PENTASA [Concomitant]
     Indication: INFLAMMATORY BOWEL DISEASE
     Dates: start: 20060624
  6. TRAMACET [Concomitant]
     Dates: start: 20080222

REACTIONS (1)
  - CYTOMEGALOVIRUS COLITIS [None]
